FAERS Safety Report 23237800 (Version 1)
Quarter: 2023Q4

REPORT INFORMATION
  Report Type: Spontaneous
  Country: PL (occurrence: PL)
  Receive Date: 20231128
  Receipt Date: 20231128
  Transmission Date: 20240110
  Serious: Yes (Life-Threatening, Other)
  Sender: FDA-Public Use
  Company Number: PL-Accord-391510

PATIENT
  Age: 24 Year
  Sex: Female

DRUGS (14)
  1. METHOTREXATE [Suspect]
     Active Substance: METHOTREXATE
     Indication: Prophylaxis
     Route: 037
  2. BORTEZOMIB [Suspect]
     Active Substance: BORTEZOMIB
     Indication: Acute lymphocytic leukaemia
     Dosage: TWICE A WEEK (7 DOSES X 1 MG/M2) SC.
     Route: 058
  3. CYTARABINE [Suspect]
     Active Substance: CYTARABINE
     Indication: Prophylaxis
     Route: 037
  4. DARATUMUMAB [Suspect]
     Active Substance: DARATUMUMAB
     Indication: Acute lymphocytic leukaemia
     Dosage: 1,800 MG SC EVERY SECOND WEEK 3 DOSES
     Route: 058
  5. DEXAMETHASONE [Suspect]
     Active Substance: DEXAMETHASONE
     Indication: Prophylaxis
     Route: 037
  6. PEG/L-ASPARAGINASE [Suspect]
     Active Substance: PEGASPARGASE
     Indication: Acute lymphocytic leukaemia
     Dosage: 2,000 IU/M2?7
  7. VENETOCLAX [Suspect]
     Active Substance: VENETOCLAX
     Indication: Acute lymphocytic leukaemia
     Dosage: 200 MG?1-19
  8. NELARABINE [Suspect]
     Active Substance: NELARABINE
     Indication: Acute lymphocytic leukaemia
     Dosage: AT A DOSE OF 1,500 MG/M2, IV
     Route: 042
  9. CYCLOPHOSPHAMIDE [Concomitant]
     Active Substance: CYCLOPHOSPHAMIDE
     Indication: Acute lymphocytic leukaemia
  10. VINCRISTINE SULFATE [Concomitant]
     Active Substance: VINCRISTINE SULFATE
     Indication: Acute lymphocytic leukaemia
  11. DOXORUBICIN [Concomitant]
     Active Substance: DOXORUBICIN
     Indication: Acute lymphocytic leukaemia
  12. CLOFARABINE [Concomitant]
     Active Substance: CLOFARABINE
     Indication: Acute lymphocytic leukaemia
  13. TREOSULFAN [Concomitant]
     Active Substance: TREOSULFAN
  14. FLUDARABINE [Concomitant]
     Active Substance: FLUDARABINE PHOSPHATE

REACTIONS (5)
  - Neutropenia [Unknown]
  - Thrombocytopenia [Unknown]
  - Anaemia [Unknown]
  - Polyneuropathy [Unknown]
  - Off label use [Unknown]
